FAERS Safety Report 5338372-6 (Version None)
Quarter: 2007Q2

REPORT INFORMATION
  Report Type: 
  Country: None (occurrence: None)
  Receive Date: 20070322
  Receipt Date: 20060725
  Transmission Date: 20071010
  Serious: Yes (Other)
  Sender: FDA-Public Use
  Company Number: 200611622BCC

PATIENT
  Age: 55 Year
  Sex: Female
  Weight: 98.8842 kg

DRUGS (4)
  1. ALEVE (CAPLET) [Suspect]
     Indication: ARTHRALGIA
     Dosage: 220 MG, QD, ORAL
     Route: 048
     Dates: start: 20060401
  2. ALEVE (CAPLET) [Suspect]
     Indication: ARTHRALGIA
     Dosage: 220 MG, QD, ORAL
     Route: 048
     Dates: start: 20060425
  3. VITAMIN B-12 [Concomitant]
  4. VITAMIN D [Concomitant]

REACTIONS (3)
  - ARTHRALGIA [None]
  - HAEMATOCHEZIA [None]
  - RECTAL HAEMORRHAGE [None]
